FAERS Safety Report 19909088 (Version 1)
Quarter: 2021Q4

REPORT INFORMATION
  Report Type: Spontaneous
  Country: US (occurrence: US)
  Receive Date: 20211001
  Receipt Date: 20211001
  Transmission Date: 20220304
  Serious: No
  Sender: FDA-Public Use
  Company Number: US-AMARIN PHARMA, INC.-2020AMR000783

PATIENT
  Age: 68 Year
  Sex: Female
  Weight: 70.37 kg

DRUGS (2)
  1. VASCEPA [Suspect]
     Active Substance: ICOSAPENT ETHYL
     Indication: Blood triglycerides increased
     Route: 048
     Dates: start: 2017, end: 202010
  2. VASCEPA [Suspect]
     Active Substance: ICOSAPENT ETHYL
     Route: 048
     Dates: end: 20201102

REACTIONS (3)
  - Hypersensitivity [Unknown]
  - Food poisoning [Unknown]
  - Rash [Unknown]

NARRATIVE: CASE EVENT DATE: 20180501
